FAERS Safety Report 6739976-6 (Version None)
Quarter: 2010Q2

REPORT INFORMATION
  Report Type: 
  Country: None (occurrence: None)
  Receive Date: 20100525
  Receipt Date: 20100512
  Transmission Date: 20101027
  Serious: Yes (Hospitalization)
  Sender: FDA-Public Use
  Company Number: DE-ELI_LILLY_AND_COMPANY-DE201004000096

PATIENT
  Sex: Female
  Weight: 57 kg

DRUGS (11)
  1. GEMCITABINE HCL [Suspect]
     Indication: BILE DUCT CANCER
     Dosage: 750 MG/M2, WEEKLY (1/W)
     Route: 042
     Dates: start: 20100129, end: 20100312
  2. SORAFENIB [Suspect]
     Indication: BILE DUCT CANCER
     Dosage: 400 MG, 2/D
     Route: 048
     Dates: start: 20100129, end: 20100321
  3. AMITRIPTYLINE /00002201/ [Concomitant]
     Dosage: 25 MG, DAILY (1/D)
  4. ASPIRIN [Concomitant]
     Dosage: 100 MG, DAILY (1/D)
  5. BISOPROLOL [Concomitant]
     Dosage: 5 MG, DAILY (1/D)
  6. DIMETINDENE [Concomitant]
     Dosage: UNK, DAILY (1/D)
  7. METAMIZOLE [Concomitant]
     Dosage: 2000 MG, DAILY (1/D)
  8. PANTOPRAZOLE [Concomitant]
     Dosage: 20 MG, DAILY (1/D)
  9. TILIDINE [Concomitant]
     Dosage: 300 MG, DAILY (1/D)
  10. METOCLOPRAMIDE [Concomitant]
  11. SYMBICORT [Concomitant]
     Dosage: 320 UG, 2/D

REACTIONS (2)
  - RESPIRATORY TRACT INFECTION [None]
  - TACHYARRHYTHMIA [None]
